FAERS Safety Report 9565346 (Version 3)
Quarter: 2014Q1

REPORT INFORMATION
  Report Type: Spontaneous
  Country: FR (occurrence: FR)
  Receive Date: 20130930
  Receipt Date: 20140123
  Transmission Date: 20141002
  Serious: Yes (Hospitalization, Other)
  Sender: FDA-Public Use
  Company Number: FR-PFIZER INC-2013275142

PATIENT
  Age: 12 Year
  Sex: Female
  Weight: 38 kg

DRUGS (1)
  1. GENOTONORM [Suspect]
     Indication: TURNER^S SYNDROME
     Dosage: 2 MG, DAILY
     Route: 058
     Dates: start: 201305, end: 20131001

REACTIONS (1)
  - Type 1 diabetes mellitus [Recovering/Resolving]
